FAERS Safety Report 11084398 (Version 3)
Quarter: 2015Q2

REPORT INFORMATION
  Report Type: Report from Study
  Country: DE (occurrence: DE)
  Receive Date: 20150502
  Receipt Date: 20150622
  Transmission Date: 20150821
  Serious: Yes (Life-Threatening, Hospitalization)
  Sender: FDA-Public Use
  Company Number: PHHO2015DE006860

PATIENT
  Age: 76 Year
  Sex: Female
  Weight: 120 kg

DRUGS (9)
  1. CANDECOR COMP [Concomitant]
     Indication: HYPERTENSION
     Dosage: 1 APPLICATION QD
     Route: 048
     Dates: start: 20140910
  2. EUTHYROX [Concomitant]
     Active Substance: LEVOTHYROXINE SODIUM
     Dosage: 100 UG, QD
     Route: 048
     Dates: start: 20150223
  3. CALCIUM ^SANDOZ^ [Concomitant]
     Active Substance: CALCIUM
     Indication: PARATHYROIDECTOMY
     Dosage: 500 MG, QID
     Route: 048
     Dates: start: 20150225
  4. AIN457 [Suspect]
     Active Substance: SECUKINUMAB
     Indication: PSORIASIS
     Dosage: UNK
     Route: 058
     Dates: start: 20140617, end: 20150324
  5. EUTHYROX [Concomitant]
     Active Substance: LEVOTHYROXINE SODIUM
     Indication: THYROIDECTOMY
     Dosage: 100 UG, QD
     Route: 048
     Dates: start: 19950101, end: 20140222
  6. CONCOR [Concomitant]
     Active Substance: BISOPROLOL FUMARATE
     Indication: HYPERTENSION
     Dosage: 10 MG, QD
     Route: 048
     Dates: start: 19900101, end: 20140905
  7. CANDESARTAN [Concomitant]
     Active Substance: CANDESARTAN
     Indication: HYPERTENSION
     Dosage: 10 MG, QD
     Dates: start: 20140912
  8. CALCIUM ^SANDOZ^ [Concomitant]
     Active Substance: CALCIUM
     Indication: HYPOCALCAEMIA
     Dosage: 2500 MG, QD
     Route: 048
     Dates: start: 20150222, end: 20150224
  9. BAYOTENSIN [Concomitant]
     Dosage: 5 MG, QD
     Dates: start: 20140909, end: 20140909

REACTIONS (2)
  - Renal failure [Recovered/Resolved]
  - Acute kidney injury [Recovered/Resolved]

NARRATIVE: CASE EVENT DATE: 20150414
